FAERS Safety Report 10039027 (Version 1)
Quarter: 2014Q1

REPORT INFORMATION
  Report Type: Spontaneous
  Country: DE (occurrence: DE)
  Receive Date: 20140326
  Receipt Date: 20140326
  Transmission Date: 20141002
  Serious: Yes (Other)
  Sender: FDA-Public Use
  Company Number: DE-ABBVIE-14P-062-1216925-00

PATIENT
  Age: 44 Year
  Sex: Female

DRUGS (3)
  1. ERGENYL CHRONO [Suspect]
     Indication: BIPOLAR I DISORDER
     Route: 048
  2. TAVOR [Concomitant]
     Indication: PRODUCT USED FOR UNKNOWN INDICATION
  3. ZYPREXA [Concomitant]
     Indication: PRODUCT USED FOR UNKNOWN INDICATION

REACTIONS (5)
  - Pancreatic disorder [Unknown]
  - Food intolerance [Unknown]
  - Liver injury [Unknown]
  - Transaminases increased [Unknown]
  - Decreased appetite [Unknown]
